FAERS Safety Report 5053480-5 (Version None)
Quarter: 2006Q3

REPORT INFORMATION
  Report Type: 
  Country: None (occurrence: None)
  Receive Date: 20060718
  Receipt Date: 20060707
  Transmission Date: 20061208
  Serious: Yes (Other)
  Sender: FDA-Public Use
  Company Number: US-JNJFOC-20060702053

PATIENT
  Sex: Female
  Weight: 60.78 kg

DRUGS (5)
  1. ELMIRON [Suspect]
     Indication: CYSTITIS INTERSTITIAL
     Route: 048
  2. PROPRANOLOL [Concomitant]
     Indication: HEADACHE
  3. ZOLOFT [Concomitant]
     Indication: DEPRESSION
     Dosage: 100 MG, ONCE DAILY IN THE MORNING
  4. ASACOL [Concomitant]
     Indication: ABDOMINAL PAIN UPPER
  5. ASACOL [Concomitant]
     Indication: DIARRHOEA
     Dosage: 400 MG TABLET, TWO TABLETS, THREE IN ONE DAY

REACTIONS (2)
  - ALOPECIA [None]
  - COELIAC DISEASE [None]
